FAERS Safety Report 14750912 (Version 1)
Quarter: 2018Q2

REPORT INFORMATION
  Report Type: Spontaneous
  Country: IT (occurrence: IT)
  Receive Date: 20180412
  Receipt Date: 20180412
  Transmission Date: 20180711
  Serious: Yes (Death, Hospitalization, Other)
  Sender: FDA-Public Use
  Company Number: IT-B.I. PHARMACEUTICALS,INC./RIDGEFIELD-2018-BI-019329

PATIENT
  Age: 60 Year
  Sex: Female

DRUGS (2)
  1. VARGATEF [Suspect]
     Active Substance: NINTEDANIB
     Indication: LUNG ADENOCARCINOMA STAGE IV
     Route: 065
  2. VARGATEF [Suspect]
     Active Substance: NINTEDANIB
     Indication: EGFR GENE MUTATION

REACTIONS (14)
  - Fatigue [Unknown]
  - Alanine aminotransferase increased [Unknown]
  - Pleural effusion [Unknown]
  - Death [Fatal]
  - Metastases to peritoneum [Unknown]
  - Neutropenia [Unknown]
  - Anaemia [Unknown]
  - General physical health deterioration [Unknown]
  - Gastric neoplasm [Unknown]
  - Aspartate aminotransferase increased [Unknown]
  - Eosinophil count increased [Unknown]
  - Decreased appetite [Unknown]
  - Metastases to liver [Unknown]
  - Malignant neoplasm progression [Unknown]
